FAERS Safety Report 18149946 (Version 1)
Quarter: 2020Q3

REPORT INFORMATION
  Report Type: Spontaneous
  Country: AU (occurrence: AU)
  Receive Date: 20200814
  Receipt Date: 20200814
  Transmission Date: 20201103
  Serious: Yes (Other)
  Sender: FDA-Public Use
  Company Number: AU-BAUSCH-BL-2020-022353

PATIENT
  Age: 70 Year
  Sex: Female

DRUGS (5)
  1. METHOTREXATE. [Suspect]
     Active Substance: METHOTREXATE
     Indication: PRODUCT USED FOR UNKNOWN INDICATION
     Route: 065
  2. IMMUNOGLOBULIN [Concomitant]
     Indication: PRODUCT USED FOR UNKNOWN INDICATION
  3. PREDNISOLONE. [Suspect]
     Active Substance: PREDNISOLONE
     Indication: PRODUCT USED FOR UNKNOWN INDICATION
     Route: 065
  4. HYDROXYCHLOROQUINE SULPHATE [Suspect]
     Active Substance: HYDROXYCHLOROQUINE
     Indication: PRODUCT USED FOR UNKNOWN INDICATION
     Route: 065
  5. RIVAROXABAN [Concomitant]
     Active Substance: RIVAROXABAN
     Indication: PRODUCT USED FOR UNKNOWN INDICATION

REACTIONS (19)
  - Decreased appetite [Unknown]
  - Disseminated mycobacterium avium complex infection [Unknown]
  - Chills [Unknown]
  - Peptostreptococcus infection [Unknown]
  - Calcinosis [Unknown]
  - Delirium [Unknown]
  - Pyrexia [Unknown]
  - Bone abscess [Unknown]
  - Bacterial infection [Unknown]
  - Skin bacterial infection [Unknown]
  - Enterobacter infection [Unknown]
  - Cachexia [Unknown]
  - Pain in extremity [Unknown]
  - Weight decreased [Unknown]
  - Acid fast bacilli infection [Unknown]
  - Sepsis [Unknown]
  - Pain [Unknown]
  - Dermal sinus [Unknown]
  - Skin lesion [Unknown]
